FAERS Safety Report 6747382-3 (Version None)
Quarter: 2010Q2

REPORT INFORMATION
  Report Type: 
  Country: None (occurrence: None)
  Receive Date: 20100528
  Receipt Date: 20100519
  Transmission Date: 20101027
  Serious: Yes (Hospitalization)
  Sender: FDA-Public Use
  Company Number: B0657114A

PATIENT
  Sex: Female
  Weight: 86 kg

DRUGS (4)
  1. LAPATINIB [Suspect]
     Indication: BREAST CANCER
     Dosage: 1500MG PER DAY
     Route: 048
     Dates: start: 20100304
  2. TRASTUZUMAB [Suspect]
     Indication: BREAST CANCER
     Dosage: 2MGK WEEKLY
     Route: 042
     Dates: start: 20091028, end: 20100114
  3. PACLITAXEL [Suspect]
     Indication: BREAST CANCER
     Dosage: 80MGM2 WEEKLY
     Route: 042
     Dates: start: 20091029, end: 20100114
  4. RADIOTHERAPY [Suspect]
     Indication: BREAST CANCER
     Dates: start: 20100315

REACTIONS (4)
  - BRONCHIAL OBSTRUCTION [None]
  - COUGH [None]
  - DYSPNOEA [None]
  - PYREXIA [None]
